FAERS Safety Report 14922301 (Version 2)
Quarter: 2018Q2

REPORT INFORMATION
  Report Type: Report from Study
  Country: US (occurrence: US)
  Receive Date: 20180522
  Receipt Date: 20180606
  Transmission Date: 20180711
  Serious: Yes (Hospitalization)
  Sender: FDA-Public Use
  Company Number: US-TAIHO ONCOLOGY INC-US-2018-00109

PATIENT
  Age: 47 Year
  Sex: Female
  Weight: 55 kg

DRUGS (16)
  1. SENNA ALEXANDRINA [Concomitant]
     Active Substance: SENNA LEAF
     Dosage: AS REQUIRED
     Route: 048
  2. ONIVYDE [Suspect]
     Active Substance: IRINOTECAN HYDROCHLORIDE
     Indication: PANCREATIC CARCINOMA
     Dosage: CURRENT CYCLE 02
     Route: 042
     Dates: start: 20180427
  3. TRAMADOL. [Concomitant]
     Active Substance: TRAMADOL
     Route: 048
  4. LACTULOSE. [Concomitant]
     Active Substance: LACTULOSE
     Dosage: AS REQUIRED 10G/15ML
     Route: 048
  5. IMODIUM [Concomitant]
     Active Substance: LOPERAMIDE HYDROCHLORIDE
     Dosage: AS REQUIRED
     Route: 048
  6. SINGULAIR [Concomitant]
     Active Substance: MONTELUKAST SODIUM
     Route: 048
  7. ZOFRAN [Concomitant]
     Active Substance: ONDANSETRON HYDROCHLORIDE
     Route: 048
  8. TAS-102 [Suspect]
     Active Substance: TIPIRACIL HYDROCHLORIDE\TRIFLURIDINE
     Indication: PANCREATIC CARCINOMA
     Dosage: LAST CYCLE 02 STARTED ON 27 APRIL 2018
     Route: 048
     Dates: start: 20180413, end: 20180501
  9. LOMOTIL [Concomitant]
     Active Substance: ATROPINE SULFATE\DIPHENOXYLATE HYDROCHLORIDE
     Dosage: AS REQUIRED  (2.5 MG-0.025)
     Route: 048
  10. ZYRTEC [Concomitant]
     Active Substance: CETIRIZINE HYDROCHLORIDE
     Dosage: ORALLY
  11. OXYCODONE [Concomitant]
     Active Substance: OXYCODONE
     Dosage: AS REQUIRED
     Route: 048
  12. CREON [Concomitant]
     Active Substance: PANCRELIPASE AMYLASE\PANCRELIPASE LIPASE\PANCRELIPASE PROTEASE
     Dosage: 36000 UNITS DELAYED RELEASE CAPSULES
     Route: 048
  13. OXYCONTIN [Concomitant]
     Active Substance: OXYCODONE HYDROCHLORIDE
     Dosage: AS REQUIRED (EXTENDED RELEASE TABLET)
     Route: 048
  14. MARINOL [Concomitant]
     Active Substance: DRONABINOL
     Dosage: AS REQUIRED
     Route: 048
  15. GABAPENTIN. [Concomitant]
     Active Substance: GABAPENTIN
     Route: 048
  16. MIRALAX [Concomitant]
     Active Substance: POLYETHYLENE GLYCOL 3350
     Route: 048

REACTIONS (2)
  - Decreased appetite [Recovered/Resolved]
  - Pneumonia [Recovered/Resolved]

NARRATIVE: CASE EVENT DATE: 20180507
